FAERS Safety Report 8136752-7 (Version None)
Quarter: 2012Q1

REPORT INFORMATION
  Report Type: 
  Country: None (occurrence: None)
  Receive Date: 20120214
  Receipt Date: 20120206
  Transmission Date: 20120608
  Serious: Yes (Other)
  Sender: FDA-Public Use
  Company Number: FR-B.I. PHARMACEUTICALS,INC./RIDGEFIELD-2012-FF-00020FF

PATIENT
  Sex: Female
  Weight: 65 kg

DRUGS (6)
  1. ACETAMINOPHEN [Concomitant]
     Dosage: 4000 MG
     Route: 048
     Dates: start: 20111130
  2. RABEPRAZOLE SODIUM [Concomitant]
     Dosage: 10 MG
     Route: 048
     Dates: start: 20111110, end: 20111203
  3. KETOPROFEN [Concomitant]
     Dosage: 200 MG
     Route: 048
     Dates: start: 20111130, end: 20111203
  4. LEVOTHYROXINE SODIUM [Concomitant]
     Indication: HYPOTHYROIDISM
     Dosage: 100 MCG
     Route: 048
  5. PRADAXA [Suspect]
     Indication: THROMBOSIS PROPHYLAXIS
     Dosage: 110 MG
     Route: 048
     Dates: start: 20111130, end: 20111201
  6. PRADAXA [Suspect]
     Indication: KNEE ARTHROPLASTY

REACTIONS (2)
  - PHLEBITIS [None]
  - DRUG INEFFECTIVE [None]
